FAERS Safety Report 24422255 (Version 2)
Quarter: 2025Q1

REPORT INFORMATION
  Report Type: Spontaneous
  Country: US (occurrence: US)
  Receive Date: 20241010
  Receipt Date: 20250102
  Transmission Date: 20250409
  Serious: No
  Sender: GLAXOSMITHKLINE
  Company Number: US-GSK-US2024GSK124097

PATIENT

DRUGS (1)
  1. WELLBUTRIN XL [Suspect]
     Active Substance: BUPROPION HYDROCHLORIDE
     Indication: Depression

REACTIONS (3)
  - Drug ineffective [Unknown]
  - Insurance issue [Unknown]
  - Inability to afford medication [Unknown]
